FAERS Safety Report 7641536-X (Version None)
Quarter: 2011Q3

REPORT INFORMATION
  Report Type: 
  Country: None (occurrence: None)
  Receive Date: 20110728
  Receipt Date: 20110720
  Transmission Date: 20111222
  Serious: Yes (Hospitalization)
  Sender: FDA-Public Use
  Company Number: US-NOVOPROD-332209

PATIENT
  Age: 77 Year
  Sex: Male

DRUGS (1)
  1. NOVOLOG MIX 70/30 [Suspect]
     Indication: TYPE 2 DIABETES MELLITUS
     Dosage: UNK
     Route: 058

REACTIONS (7)
  - DEHYDRATION [None]
  - WEIGHT DECREASED [None]
  - MALAISE [None]
  - BLOOD GLUCOSE INCREASED [None]
  - HUNGER [None]
  - APATHY [None]
  - HYPOKALAEMIA [None]
